FAERS Safety Report 9400016 (Version 1)
Quarter: 2013Q3

REPORT INFORMATION
  Report Type: Spontaneous
  Country: US (occurrence: US)
  Receive Date: 20130715
  Receipt Date: 20130715
  Transmission Date: 20140515
  Serious: Yes (Death)
  Sender: FDA-Public Use
  Company Number: US-PFIZER INC-2013203339

PATIENT
  Age: 66 Year
  Sex: Male

DRUGS (13)
  1. SUTENT [Suspect]
     Indication: RENAL CANCER STAGE II
     Dosage: 50 MG, UNK
     Dates: start: 20130613
  2. ASPIRIN [Concomitant]
     Dosage: UNK
  3. LANOXIN [Concomitant]
     Dosage: UNK
  4. DEXAMETHASONE [Concomitant]
  5. LASIX [Concomitant]
  6. DILANTIN [Concomitant]
  7. METOPROLOL TARTRATE [Concomitant]
  8. DILTIAZEM HCI CD [Concomitant]
     Dosage: UNK
  9. NOVOLIN R [Concomitant]
     Dosage: UNK
  10. FOLIC ACID [Concomitant]
     Dosage: UNK
  11. ONDANSETRON HYDROCHLORIDE [Concomitant]
     Dosage: UNK
  12. HYDROCORTISONE [Concomitant]
     Dosage: UNK
  13. PROTONIX [Concomitant]
     Dosage: UNK

REACTIONS (1)
  - Death [Fatal]
